FAERS Safety Report 8870518 (Version 1)
Quarter: 2012Q4

REPORT INFORMATION
  Report Type: 
  Country: US (occurrence: US)
  Receive Date: 20121026
  Receipt Date: 20121026
  Transmission Date: 20130627
  Serious: Yes (Other)
  Sender: FDA-Public Use
  Company Number: US-AMGEN-USASP2012047082

PATIENT
  Age: 66 Year
  Sex: Male

DRUGS (1)
  1. ENBREL [Suspect]
     Indication: ARTHRALGIA
     Dosage: 50 mg, qwk
     Dates: start: 20080101, end: 20110401

REACTIONS (1)
  - Bronchopulmonary aspergillosis [Recovered/Resolved]
